FAERS Safety Report 8956919 (Version 1)
Quarter: 2012Q4

REPORT INFORMATION
  Report Type: 
  Country: FR (occurrence: FR)
  Receive Date: 20121210
  Receipt Date: 20121210
  Transmission Date: 20130627
  Serious: Yes (Other)
  Sender: FDA-Public Use
  Company Number: FR-VERTEX PHARMACEUTICALS INC.-2012-025876

PATIENT
  Sex: Male

DRUGS (4)
  1. INCIVO [Suspect]
     Indication: HEPATITIS C
     Dosage: 750 mg, tid
     Route: 048
  2. RIBAVIRINE [Concomitant]
     Indication: HEPATITIS C
  3. INTERFERON [Concomitant]
     Indication: HEPATITIS C
  4. HIV THERAPY [Concomitant]
     Indication: HIV INFECTION

REACTIONS (2)
  - Osteonecrosis [Unknown]
  - Off label use [Unknown]
